FAERS Safety Report 12531463 (Version 1)
Quarter: 2016Q3

REPORT INFORMATION
  Report Type: Spontaneous
  Country: US (occurrence: US)
  Receive Date: 20160706
  Receipt Date: 20160706
  Transmission Date: 20161109
  Serious: Yes (Other)
  Sender: FDA-Public Use
  Company Number: US-AMGEN-USASP2016083561

PATIENT
  Age: 63 Year
  Sex: Female

DRUGS (1)
  1. PROLIA [Suspect]
     Active Substance: DENOSUMAB
     Indication: PRODUCT USED FOR UNKNOWN INDICATION
     Dosage: UNK, UNK
     Route: 065

REACTIONS (5)
  - Impaired healing [Unknown]
  - Tooth extraction [Unknown]
  - Exposed bone in jaw [Unknown]
  - Gingival ulceration [Unknown]
  - Oral discomfort [Unknown]

NARRATIVE: CASE EVENT DATE: 201602
